FAERS Safety Report 20740613 (Version 14)
Quarter: 2024Q3

REPORT INFORMATION
  Report Type: Report from Study
  Country: CA (occurrence: CA)
  Receive Date: 20220422
  Receipt Date: 20240705
  Transmission Date: 20241017
  Serious: Yes (Other)
  Sender: ROCHE
  Company Number: CA-ROCHE-2541664

PATIENT
  Age: 51 Year
  Sex: Male

DRUGS (1)
  1. OCREVUS [Suspect]
     Active Substance: OCRELIZUMAB
     Indication: Relapsing-remitting multiple sclerosis
     Dosage: MORE DOSAGE INFORMATION IS 300 MG AT DAY 0 AND 14, THEN 600 MG EVERY 6 MONTH
     Route: 042
     Dates: start: 20190731

REACTIONS (16)
  - Rhinitis [Unknown]
  - Diabetes mellitus [Not Recovered/Not Resolved]
  - Pain [Unknown]
  - Muscular weakness [Not Recovered/Not Resolved]
  - Peripheral coldness [Not Recovered/Not Resolved]
  - Blood glucose increased [Unknown]
  - SARS-CoV-2 test positive [Recovered/Resolved]
  - Hypoaesthesia [Unknown]
  - Mobility decreased [Unknown]
  - Limb discomfort [Unknown]
  - Infection [Recovered/Resolved]
  - Pyrexia [Unknown]
  - Blood glucose increased [Unknown]
  - Fall [Unknown]
  - Multiple sclerosis [Not Recovered/Not Resolved]
  - COVID-19 [Recovered/Resolved]

NARRATIVE: CASE EVENT DATE: 20220411
